FAERS Safety Report 8204930-4 (Version None)
Quarter: 2012Q1

REPORT INFORMATION
  Report Type: 
  Country: None (occurrence: None)
  Receive Date: 20120313
  Receipt Date: 20120312
  Transmission Date: 20120608
  Serious: No
  Sender: FDA-Public Use
  Company Number: US-PFIZER INC-2012032327

PATIENT
  Sex: Female
  Weight: 78.912 kg

DRUGS (8)
  1. CELEBREX [Suspect]
     Dosage: 200 MG, 2X/DAY
     Route: 048
     Dates: start: 20031003
  2. ABILIFY [Concomitant]
     Dosage: 10 MG, 1X/DAY
  3. NEXIUM [Concomitant]
     Indication: GASTROOESOPHAGEAL REFLUX DISEASE
  4. CELEBREX [Suspect]
     Indication: ARTHRITIS
     Dosage: 200 MG, UNK
     Route: 048
     Dates: start: 20110413
  5. LEVOXYL [Concomitant]
     Dosage: 88 UG, 1X/DAY
  6. QUETIAPINE [Concomitant]
     Dosage: 600 MG, 1X/DAY
  7. LORAZEPAM [Concomitant]
     Dosage: 2 MG, 1X/DAY
  8. NEXIUM [Concomitant]
     Indication: RASH
     Dosage: 40 MG, 1X/DAY

REACTIONS (3)
  - LARYNGITIS [None]
  - PROTEIN TOTAL DECREASED [None]
  - BLOOD CREATININE INCREASED [None]
